FAERS Safety Report 22525549 (Version 1)
Quarter: 2023Q2

REPORT INFORMATION
  Report Type: Spontaneous
  Country: US (occurrence: US)
  Receive Date: 20230606
  Receipt Date: 20230606
  Transmission Date: 20230721
  Serious: Yes (Life-Threatening, Hospitalization, Other)
  Sender: FDA-Public Use
  Company Number: US-PFIZER INC-202300208296

PATIENT
  Age: 42 Year
  Sex: Male

DRUGS (4)
  1. DOBUTAMINE HYDROCHLORIDE [Suspect]
     Active Substance: DOBUTAMINE HYDROCHLORIDE
     Indication: Respiratory failure
     Dosage: UNK
  2. NOREPINEPHRINE BITARTRATE [Suspect]
     Active Substance: NOREPINEPHRINE BITARTRATE
     Indication: Respiratory failure
     Dosage: UNK
  3. VASOPRESSIN [Suspect]
     Active Substance: VASOPRESSIN
     Indication: Respiratory failure
     Dosage: UNK
  4. PHENYLEPHRINE [Suspect]
     Active Substance: PHENYLEPHRINE HYDROCHLORIDE
     Indication: Respiratory failure
     Dosage: UNK

REACTIONS (2)
  - Gastric ulcer [Unknown]
  - Gastrointestinal mucormycosis [Unknown]
